FAERS Safety Report 8388541-6 (Version None)
Quarter: 2012Q2

REPORT INFORMATION
  Report Type: 
  Country: None (occurrence: None)
  Receive Date: 20120525
  Receipt Date: 20120523
  Transmission Date: 20120825
  Serious: Yes (Hospitalization, Other)
  Sender: FDA-Public Use
  Company Number: PHHO2012CZ005051

PATIENT
  Age: 66 Year
  Sex: Female
  Weight: 88 kg

DRUGS (9)
  1. METHOTREXATE [Suspect]
     Dosage: UNK
     Route: 048
     Dates: start: 20120223
  2. CARVEDILOL [Concomitant]
     Indication: HYPERTENSION
     Dosage: 25 MG, BID
     Route: 048
     Dates: start: 20051101
  3. ASPIRIN [Concomitant]
     Indication: MYOCARDIAL ISCHAEMIA
     Dosage: 100 MG, QD
     Route: 048
     Dates: start: 20051101
  4. ATORVASTATIN CALCIUM [Concomitant]
     Indication: HYPERLIPIDAEMIA
     Dosage: 20 MG, QD
     Route: 048
     Dates: start: 20051101
  5. HUMIRA [Concomitant]
     Indication: RHEUMATOID ARTHRITIS
     Dosage: 40 MG ONCE IN 2 WEEKS
     Route: 058
     Dates: start: 20120215
  6. PERINDOPRIL ERBUMINE [Concomitant]
     Indication: MYOCARDIAL ISCHAEMIA
     Dosage: 5 MG, QD
     Route: 048
     Dates: start: 20051101
  7. DICLOFENAC SODIUM [Concomitant]
     Indication: RHEUMATOID ARTHRITIS
     Route: 048
  8. METHOTREXATE [Suspect]
     Indication: RHEUMATOID ARTHRITIS
     Dosage: 1 IN 1 WEEK
     Route: 048
     Dates: start: 20120216, end: 20120223
  9. LANSOPRAZOLE [Concomitant]
     Indication: PROPHYLAXIS
     Dosage: UNK
     Route: 048

REACTIONS (10)
  - OESOPHAGITIS [None]
  - HELICOBACTER TEST POSITIVE [None]
  - POLYNEUROPATHY [None]
  - ASTHENIA [None]
  - HIATUS HERNIA [None]
  - PLEOCYTOSIS [None]
  - DYSPEPSIA [None]
  - ACTIVITIES OF DAILY LIVING IMPAIRED [None]
  - HYPOTENSION [None]
  - PARESIS [None]
